FAERS Safety Report 6396193-X (Version None)
Quarter: 2009Q4

REPORT INFORMATION
  Report Type: 
  Country: None (occurrence: None)
  Receive Date: 20091011
  Receipt Date: 20090929
  Transmission Date: 20100525
  Serious: Yes (Other)
  Sender: FDA-Public Use
  Company Number: PHEH2004US13501

PATIENT
  Sex: Female

DRUGS (33)
  1. AREDIA [Suspect]
     Indication: BREAST CANCER METASTATIC
     Dosage: 90 MG, QMO
     Dates: start: 20000620, end: 20020329
  2. AREDIA [Suspect]
     Dosage: 90 MG, QMO
     Dates: start: 20020912, end: 20040415
  3. AREDIA [Suspect]
     Dosage: UNK
  4. ZOMETA [Suspect]
     Indication: BREAST CANCER METASTATIC
     Dosage: 4 MG, QMO
     Route: 042
     Dates: start: 20020329, end: 20020912
  5. TAXOL [Concomitant]
     Dosage: 175 MG/M2, UNK
     Route: 017
  6. TAMOXIFEN CITRATE [Concomitant]
     Dosage: 20 MG, QD
  7. ARIMIDEX [Concomitant]
     Dosage: 1 MG, QD
  8. FASLODEX [Concomitant]
     Dosage: 250 MG, QMO
     Route: 030
  9. VASOTEC [Concomitant]
     Dosage: 25 MG, UNK
  10. LASIX [Concomitant]
     Dosage: 40 MG, UNK
  11. POTASSIUM CHLORIDE [Concomitant]
     Dosage: 10 MEQ, UNK
  12. ASPIRIN [Concomitant]
     Dosage: 81 MG, UNK
  13. ZOLOFT [Concomitant]
     Dosage: 50 MG, UNK
  14. DEXAMETHASONE 0.5MG TAB [Concomitant]
     Dosage: 20 MG, UNK
  15. OXYCONTIN [Concomitant]
     Dosage: 20 MG, UNK
  16. PROCRIT [Concomitant]
     Dosage: 20000 UNK, UNK
  17. LEVAQUIN [Concomitant]
     Dosage: 500 MG, UNK
  18. ARANESP [Concomitant]
     Dosage: 200MCG QWK
  19. NEUPOGEN [Concomitant]
     Dosage: 480 MCG
  20. CARBOPLATIN [Concomitant]
     Dosage: 204 MG, UNK
  21. ZOFRAN [Concomitant]
     Dosage: 8 MG, UNK
  22. XELODA [Concomitant]
     Dosage: 2000 MG, UNK
  23. ZOLOFT [Concomitant]
  24. PROTONIX [Concomitant]
  25. NASONEX [Concomitant]
     Dates: start: 20031106
  26. CLARINEX /USA/ [Concomitant]
  27. OXYCODONE HCL [Concomitant]
  28. NAVELBINE [Concomitant]
     Dosage: 42 MG, UNK
  29. TAXOTERE [Concomitant]
     Dosage: 58 MG, UNK
  30. COMPAZINE [Concomitant]
  31. AUGMENTIN '125' [Concomitant]
     Dosage: 875 MG, BID
  32. FLAGYL [Concomitant]
     Dosage: 500 MG, BID
  33. AROMASIN [Concomitant]
     Dosage: 25 MG, QD

REACTIONS (24)
  - BONE DISORDER [None]
  - BONE GRAFT [None]
  - DEBRIDEMENT [None]
  - DENTAL IMPLANTATION [None]
  - DEVICE FAILURE [None]
  - DISEASE RECURRENCE [None]
  - EXCESSIVE GRANULATION TISSUE [None]
  - FRACTURE [None]
  - GINGIVAL SWELLING [None]
  - IMPAIRED HEALING [None]
  - JAW OPERATION [None]
  - OEDEMA MUCOSAL [None]
  - ORAL INFECTION [None]
  - ORAL MUCOSAL ERYTHEMA [None]
  - OSTEITIS [None]
  - OSTEONECROSIS [None]
  - PAIN IN JAW [None]
  - PERIODONTAL DISEASE [None]
  - PRIMARY SEQUESTRUM [None]
  - SOFT TISSUE DISORDER [None]
  - STOMATITIS [None]
  - TOOTH ABSCESS [None]
  - TOOTH EXTRACTION [None]
  - TOOTHACHE [None]
